FAERS Safety Report 5935872-2 (Version None)
Quarter: 2008Q4

REPORT INFORMATION
  Report Type: 
  Country: None (occurrence: None)
  Receive Date: 20081030
  Receipt Date: 20081024
  Transmission Date: 20090506
  Serious: Yes (Hospitalization, Other)
  Sender: FDA-Public Use
  Company Number: US-BRISTOL-MYERS SQUIBB COMPANY-14367510

PATIENT
  Age: 75 Year
  Sex: Female

DRUGS (8)
  1. ERBITUX [Suspect]
     Indication: ADENOCARCINOMA PANCREAS
     Dosage: 17-SEP-2008, 400 MG/M2 (LOADING DOSE)
     Route: 042
     Dates: start: 20081006, end: 20081006
  2. GEMZAR [Suspect]
     Indication: ADENOCARCINOMA PANCREAS
     Route: 042
     Dates: start: 20081006, end: 20081006
  3. RADIOTHERAPY [Suspect]
     Indication: ADENOCARCINOMA PANCREAS
  4. DECADRON [Concomitant]
     Indication: PREMEDICATION
     Route: 042
  5. ZOFRAN [Concomitant]
     Indication: PREMEDICATION
     Route: 042
  6. BENADRYL [Concomitant]
     Indication: PREMEDICATION
     Route: 042
  7. DOCUSATE SODIUM [Concomitant]
     Route: 048
  8. SENNA [Concomitant]
     Route: 048

REACTIONS (6)
  - CELLULITIS [None]
  - DEEP VEIN THROMBOSIS [None]
  - DEHYDRATION [None]
  - NAUSEA [None]
  - PLATELET COUNT DECREASED [None]
  - PYREXIA [None]
